FAERS Safety Report 7457572-2 (Version None)
Quarter: 2011Q2

REPORT INFORMATION
  Report Type: 
  Country: None (occurrence: None)
  Receive Date: 20110504
  Receipt Date: 20110427
  Transmission Date: 20111010
  Serious: Yes (Other)
  Sender: FDA-Public Use
  Company Number: JP-AMGEN-JPNSP2011022082

PATIENT
  Age: 72 Year
  Sex: Female

DRUGS (6)
  1. SITAGLIPTIN PHOSPHATE [Concomitant]
     Dosage: UNK
  2. ASPIRIN [Concomitant]
     Dosage: UNK
  3. ENBREL [Suspect]
     Indication: RHEUMATOID ARTHRITIS
     Dosage: UNK
     Route: 058
     Dates: start: 20080730
  4. ALLOPURINOL [Concomitant]
     Dosage: UNK
  5. MICARDIS [Concomitant]
     Dosage: UNK
  6. CONIEL [Concomitant]
     Dosage: UNK

REACTIONS (1)
  - HEPATIC FAILURE [None]
